FAERS Safety Report 23330507 (Version 1)
Quarter: 2023Q4

REPORT INFORMATION
  Report Type: Spontaneous
  Country: US (occurrence: US)
  Receive Date: 20231222
  Receipt Date: 20231222
  Transmission Date: 20240109
  Serious: No
  Sender: FDA-Public Use
  Company Number: US-AJANTA-2023AJA00253

PATIENT
  Age: 69 Year
  Sex: Male
  Weight: 275 kg

DRUGS (2)
  1. DULOXETINE [Suspect]
     Active Substance: DULOXETINE
     Indication: Vasculitis
     Route: 048
     Dates: start: 2021
  2. GABAPENTIN [Concomitant]
     Active Substance: GABAPENTIN
     Dosage: 04 TABLETS A DAY

REACTIONS (1)
  - Eye pain [Not Recovered/Not Resolved]

NARRATIVE: CASE EVENT DATE: 20220101
